FAERS Safety Report 6731302-1 (Version None)
Quarter: 2010Q2

REPORT INFORMATION
  Report Type: 
  Country: None (occurrence: None)
  Receive Date: 20100518
  Receipt Date: 20100517
  Transmission Date: 20101027
  Serious: Yes (Hospitalization, Disabling)
  Sender: FDA-Public Use
  Company Number: US-MERCK-1002USA00479

PATIENT
  Age: 63 Year
  Sex: Female
  Weight: 61 kg

DRUGS (2)
  1. FOSAMAX [Suspect]
     Indication: OSTEOPOROSIS
     Route: 048
     Dates: start: 19960101, end: 20080101
  2. FOSAMAX [Suspect]
     Route: 048
     Dates: start: 20080208

REACTIONS (6)
  - ARTHROPATHY [None]
  - COLLAGEN DISORDER [None]
  - FALL [None]
  - FEMUR FRACTURE [None]
  - POSTOPERATIVE FEVER [None]
  - ROTATOR CUFF SYNDROME [None]
